FAERS Safety Report 6189143-2 (Version None)
Quarter: 2009Q2

REPORT INFORMATION
  Report Type: 
  Country: None (occurrence: None)
  Receive Date: 20090513
  Receipt Date: 20090305
  Transmission Date: 20091009
  Serious: No
  Sender: FDA-Public Use
  Company Number: A0771846A

PATIENT
  Age: 40 Year
  Sex: Female

DRUGS (1)
  1. TREXIMET [Suspect]
     Indication: MIGRAINE
     Dosage: 1TAB VARIABLE DOSE
     Route: 048
     Dates: start: 20090201, end: 20090201

REACTIONS (1)
  - RASH [None]
